FAERS Safety Report 5733900-0 (Version None)
Quarter: 2008Q2

REPORT INFORMATION
  Report Type: 
  Country: None (occurrence: None)
  Receive Date: 20080509
  Receipt Date: 20080428
  Transmission Date: 20081010
  Serious: Yes (Other)
  Sender: FDA-Public Use
  Company Number: IT-PFIZER INC-2008037252

PATIENT
  Age: 46 Year
  Sex: Male

DRUGS (2)
  1. PREDNISONE TAB [Suspect]
     Dosage: DAILY DOSE:25MG
  2. DAPSONE [Suspect]
     Dosage: DAILY DOSE:100MG

REACTIONS (1)
  - DAPSONE SYNDROME [None]
